FAERS Safety Report 17375811 (Version 2)
Quarter: 2020Q1

REPORT INFORMATION
  Report Type: Spontaneous
  Country: JP (occurrence: JP)
  Receive Date: 20200206
  Receipt Date: 20200317
  Transmission Date: 20200409
  Serious: Yes (Death, Life-Threatening, Hospitalization, Other)
  Sender: FDA-Public Use
  Company Number: JP-ACCORD-171782

PATIENT
  Age: 70 Year
  Sex: Female

DRUGS (1)
  1. METHOTREXATE. [Suspect]
     Active Substance: METHOTREXATE
     Indication: RHEUMATOID ARTHRITIS

REACTIONS (8)
  - Human T-cell lymphotropic virus type I infection [Fatal]
  - Optic neuritis [Not Recovered/Not Resolved]
  - General physical health deterioration [Recovered/Resolved]
  - Thrombocytopenia [Unknown]
  - Diffuse large B-cell lymphoma [Fatal]
  - Liver injury [Unknown]
  - Lymphoproliferative disorder [Fatal]
  - Disseminated intravascular coagulation [Not Recovered/Not Resolved]
